FAERS Safety Report 18705266 (Version 3)
Quarter: 2021Q1

REPORT INFORMATION
  Report Type: Report from Study
  Country: None (occurrence: US)
  Receive Date: 20210106
  Receipt Date: 20210323
  Transmission Date: 20210419
  Serious: Yes (Other)
  Sender: FDA-Public Use
  Company Number: US-ABBVIE-20K-163-3713663-00

PATIENT
  Sex: Male
  Weight: 104 kg

DRUGS (1)
  1. SKYRIZI [Suspect]
     Active Substance: RISANKIZUMAB-RZAA
     Indication: PSORIASIS
     Dosage: 2 INJECTIONS
     Route: 058

REACTIONS (3)
  - Joint noise [Unknown]
  - Skin papilloma [Recovered/Resolved]
  - Nail discolouration [Unknown]
